FAERS Safety Report 13688662 (Version 1)
Quarter: 2017Q2

REPORT INFORMATION
  Report Type: Report from Study
  Country: CN (occurrence: CN)
  Receive Date: 20170626
  Receipt Date: 20170626
  Transmission Date: 20170830
  Serious: Yes (Death)
  Sender: FDA-Public Use
  Company Number: CN-ASTELLAS-2017US025055

PATIENT
  Sex: Female

DRUGS (1)
  1. ERLOTINIB [Suspect]
     Active Substance: ERLOTINIB
     Indication: NON-SMALL CELL LUNG CANCER
     Route: 048
     Dates: start: 20130301

REACTIONS (5)
  - Anal incontinence [Fatal]
  - Drug resistance [Fatal]
  - Organ failure [Fatal]
  - Urinary incontinence [Fatal]
  - Decreased appetite [Unknown]
